FAERS Safety Report 4973578-7 (Version None)
Quarter: 2006Q2

REPORT INFORMATION
  Report Type: 
  Country: None (occurrence: None)
  Receive Date: 20060413
  Receipt Date: 20060413
  Transmission Date: 20061013
  Serious: Yes (Disabling)
  Sender: FDA-Public Use
  Company Number: None

PATIENT
  Age: 45 Year
  Sex: Female
  Weight: 67.1324 kg

DRUGS (2)
  1. VIOXX [Suspect]
     Indication: PERIARTHRITIS
  2. BEXTRA [Suspect]
     Indication: PERIARTHRITIS

REACTIONS (5)
  - CARDIAC ARREST [None]
  - DIZZINESS [None]
  - HEART RATE IRREGULAR [None]
  - HYPERSENSITIVITY [None]
  - SYNCOPE [None]
